FAERS Safety Report 5091557-9 (Version None)
Quarter: 2006Q3

REPORT INFORMATION
  Report Type: 
  Country: None (occurrence: None)
  Receive Date: 20060824
  Receipt Date: 20060811
  Transmission Date: 20061208
  Serious: Yes (Other)
  Sender: FDA-Public Use
  Company Number: 2006099484

PATIENT

DRUGS (1)
  1. AZITHROMYCIN [Suspect]
     Indication: DRUG USE FOR UNKNOWN INDICATION
     Dosage: 500 MG, ORAL
     Route: 048
     Dates: start: 20060731, end: 20060801

REACTIONS (1)
  - HALLUCINATION [None]
